FAERS Safety Report 4335520-1 (Version None)
Quarter: 2004Q2

REPORT INFORMATION
  Report Type: 
  Country: None (occurrence: None)
  Receive Date: 20040406
  Receipt Date: 20040402
  Transmission Date: 20050107
  Serious: Yes (Hospitalization, Disabling)
  Sender: FDA-Public Use
  Company Number: 002#4#2004-00071

PATIENT
  Age: 40 Year
  Sex: Male

DRUGS (6)
  1. CHLORPHENIRAMINE MALEATE AND PHENYLPROPANOLAMINE HCL [Suspect]
     Indication: SINUS DISORDER
     Dosage: ORAL
     Route: 048
  2. ALKA-SELTZER-PLUS [Suspect]
     Indication: NASOPHARYNGITIS
     Dosage: ORAL
     Route: 048
  3. TYLENOL [Suspect]
     Indication: NASOPHARYNGITIS
     Dosage: ORAL
     Route: 048
  4. BC-COLD [Suspect]
     Indication: NASOPHARYNGITIS
     Dosage: ORAL
     Route: 048
  5. TYLENOL [Concomitant]
  6. COMTREX [Concomitant]

REACTIONS (12)
  - ATAXIA [None]
  - BLOOD PRESSURE INCREASED [None]
  - BRAIN STEM HAEMORRHAGE [None]
  - CIRCULATORY COLLAPSE [None]
  - COORDINATION ABNORMAL [None]
  - DIPLOPIA [None]
  - FACIAL PALSY [None]
  - HEADACHE [None]
  - HEMIPARESIS [None]
  - ISCHAEMIC STROKE [None]
  - OPHTHALMOPLEGIA [None]
  - VISION BLURRED [None]
